FAERS Safety Report 6196752-3 (Version None)
Quarter: 2009Q2

REPORT INFORMATION
  Report Type: 
  Country: None (occurrence: None)
  Receive Date: 20090520
  Receipt Date: 20090508
  Transmission Date: 20091009
  Serious: Yes (Hospitalization)
  Sender: FDA-Public Use
  Company Number: US-MERCK-0904USA03545

PATIENT
  Age: 62 Year
  Sex: Male
  Weight: 87 kg

DRUGS (11)
  1. VYTORIN [Suspect]
     Route: 048
     Dates: start: 20070601, end: 20080301
  2. VYTORIN [Suspect]
     Route: 048
     Dates: start: 20071101
  3. GEMFIBROZIL [Suspect]
     Route: 065
     Dates: end: 20080301
  4. ETODOLAC [Concomitant]
     Route: 065
  5. PLAVIX [Concomitant]
     Route: 065
  6. METOPROLOL [Concomitant]
     Route: 065
  7. MEPERIDINE HYDROCHLORIDE [Concomitant]
     Route: 065
  8. VALIUM [Concomitant]
     Route: 065
  9. TRAMADOL HYDROCHLORIDE [Concomitant]
     Route: 065
  10. LORTAB [Concomitant]
     Route: 065
  11. ASPIRIN [Concomitant]
     Route: 065

REACTIONS (29)
  - ACIDOSIS [None]
  - ANGINA PECTORIS [None]
  - BACK PAIN [None]
  - BENIGN PROSTATIC HYPERPLASIA [None]
  - BLOOD CHOLESTEROL ABNORMAL [None]
  - BLOOD POTASSIUM INCREASED [None]
  - BLOOD TRIGLYCERIDES ABNORMAL [None]
  - CARDIAC STRESS TEST ABNORMAL [None]
  - CHILLS [None]
  - DYSPNOEA EXERTIONAL [None]
  - ELECTROCARDIOGRAM ABNORMAL [None]
  - FATIGUE [None]
  - HEADACHE [None]
  - HIGH DENSITY LIPOPROTEIN ABNORMAL [None]
  - HYPERLIPIDAEMIA [None]
  - HYPERTENSION [None]
  - LIVER FUNCTION TEST ABNORMAL [None]
  - LOW DENSITY LIPOPROTEIN ABNORMAL [None]
  - NEPHROPATHY [None]
  - PAIN IN EXTREMITY [None]
  - PARAPARESIS [None]
  - PYREXIA [None]
  - RENAL FAILURE ACUTE [None]
  - RHABDOMYOLYSIS [None]
  - SPONDYLOLISTHESIS [None]
  - URINARY TRACT INFECTION [None]
  - VENTRICULAR EXTRASYSTOLES [None]
  - VERY LOW DENSITY LIPOPROTEIN ABNORMAL [None]
  - WEIGHT DECREASED [None]
